FAERS Safety Report 12654385 (Version 1)
Quarter: 2016Q3

REPORT INFORMATION
  Report Type: Spontaneous
  Country: FR (occurrence: None)
  Receive Date: 20160815
  Receipt Date: 20160815
  Transmission Date: 20161109
  Serious: Yes (Disabling)
  Sender: FDA-Public Use
  Company Number: None

PATIENT
  Age: 43 Year
  Sex: Female
  Weight: 50 kg

DRUGS (4)
  1. MAGNESIUM [Concomitant]
     Active Substance: MAGNESIUM
  2. PROLIA [Suspect]
     Active Substance: DENOSUMAB
     Indication: OSTEOPOROSIS
     Dosage: EVERY SIX MONTH
     Dates: start: 20160222, end: 20160222
  3. GLUCOSAMINE [Concomitant]
     Active Substance: GLUCOSAMINE
  4. LYRICA [Concomitant]
     Active Substance: PREGABALIN

REACTIONS (3)
  - Arthralgia [None]
  - Joint range of motion decreased [None]
  - Movement disorder [None]

NARRATIVE: CASE EVENT DATE: 20160222
